FAERS Safety Report 22048703 (Version 1)
Quarter: 2023Q1

REPORT INFORMATION
  Report Type: Spontaneous
  Country: HR (occurrence: HR)
  Receive Date: 20230301
  Receipt Date: 20230301
  Transmission Date: 20230417
  Serious: Yes (Hospitalization, Other)
  Sender: FDA-Public Use
  Company Number: None

PATIENT
  Age: 53 Year
  Sex: Female
  Weight: 53 kg

DRUGS (5)
  1. DISULFIRAM [Suspect]
     Active Substance: DISULFIRAM
     Dosage: UNK
     Route: 048
     Dates: start: 20230124, end: 20230124
  2. DIAZEPAM [Suspect]
     Active Substance: DIAZEPAM
     Dosage: UNK, QD
     Route: 048
     Dates: start: 20230124, end: 20230124
  3. ZOLPIDEM TARTRATE [Suspect]
     Active Substance: ZOLPIDEM TARTRATE
     Dosage: UNK, QD
     Route: 048
     Dates: start: 20230124, end: 20230124
  4. DALTEPARIN SODIUM [Suspect]
     Active Substance: DALTEPARIN SODIUM
     Dosage: UNK UNK, QD
     Route: 048
     Dates: start: 20230124, end: 20230124
  5. FEVARIN [Suspect]
     Active Substance: FLUVOXAMINE MALEATE
     Dosage: UNK UNK, QD
     Route: 048
     Dates: start: 20230124, end: 20230124

REACTIONS (10)
  - Altered state of consciousness [Unknown]
  - Suicide attempt [Unknown]
  - Coma [Unknown]
  - Pancytopenia [Recovered/Resolved]
  - Somnolence [Unknown]
  - Acidosis [Unknown]
  - PCO2 decreased [Unknown]
  - PO2 decreased [Unknown]
  - Stupor [Unknown]
  - Intentional overdose [Unknown]

NARRATIVE: CASE EVENT DATE: 20230124
